FAERS Safety Report 17706261 (Version 2)
Quarter: 2020Q2

REPORT INFORMATION
  Report Type: Report from Study
  Country: US (occurrence: US)
  Receive Date: 20200424
  Receipt Date: 20200625
  Transmission Date: 20200714
  Serious: Yes (Other)
  Sender: FDA-Public Use
  Company Number: US-BAYER-2020-066972

PATIENT
  Age: 84 Year
  Sex: Male

DRUGS (1)
  1. NUBEQA [Suspect]
     Active Substance: DAROLUTAMIDE
     Indication: HORMONE-REFRACTORY PROSTATE CANCER
     Dosage: 600 MG, BID
     Route: 048
     Dates: start: 20200220

REACTIONS (2)
  - Neuropathy peripheral [Not Recovered/Not Resolved]
  - Incorrect product administration duration [None]

NARRATIVE: CASE EVENT DATE: 20200220
